FAERS Safety Report 6227787-X (Version None)
Quarter: 2009Q2

REPORT INFORMATION
  Report Type: 
  Country: None (occurrence: None)
  Receive Date: 20090612
  Receipt Date: 20090608
  Transmission Date: 20091009
  Serious: Yes (Hospitalization, Other)
  Sender: FDA-Public Use
  Company Number: US-TEVA-197723USA

PATIENT
  Age: 28 Year
  Sex: Male

DRUGS (4)
  1. DIVALPROEX SODIUM DELAYED-RELEASE TABLETS USP,125MG, 250MG AND 500MG [Suspect]
     Indication: SCHIZOPHRENIA, PARANOID TYPE
     Dosage: HS
     Route: 048
  2. BENZTROPINE MESYLATE [Concomitant]
     Route: 048
  3. FLUOXETINE HCL [Concomitant]
     Route: 048
  4. ZIPRASIDONE HCL [Concomitant]
     Route: 048

REACTIONS (2)
  - OVERDOSE [None]
  - SUICIDE ATTEMPT [None]
